FAERS Safety Report 5948661-X (Version None)
Quarter: 2008Q4

REPORT INFORMATION
  Report Type: 
  Country: None (occurrence: None)
  Receive Date: 20081107
  Receipt Date: 20081030
  Transmission Date: 20090506
  Serious: Yes (Other)
  Sender: FDA-Public Use
  Company Number: TPA2008A01985

PATIENT
  Age: 70 Year
  Sex: Female
  Weight: 86.637 kg

DRUGS (4)
  1. ACTOS [Suspect]
     Indication: TYPE 2 DIABETES MELLITUS
     Dosage: 15 MG, 1 IN 1 D, PER ORAL
     Route: 048
     Dates: start: 20070101, end: 20081027
  2. ANAGRELID (ANAGRELIDE) [Concomitant]
  3. METOPROLOL TARTRATE [Concomitant]
  4. PRAVASTATIN [Concomitant]

REACTIONS (9)
  - ABDOMINAL PAIN UPPER [None]
  - ANAEMIA [None]
  - CATARACT [None]
  - CHEST DISCOMFORT [None]
  - DIZZINESS [None]
  - DYSPNOEA [None]
  - HERPES ZOSTER [None]
  - SWELLING [None]
  - WEIGHT INCREASED [None]
